FAERS Safety Report 13196611 (Version 2)
Quarter: 2017Q2

REPORT INFORMATION
  Report Type: Spontaneous
  Country: DE (occurrence: DE)
  Receive Date: 20170208
  Receipt Date: 20170623
  Transmission Date: 20170830
  Serious: Yes (Hospitalization, Other)
  Sender: FDA-Public Use
  Company Number: DE-009507513-1702DEU002348

PATIENT
  Age: 68 Year
  Sex: Male
  Weight: 73 kg

DRUGS (1)
  1. JANUVIA [Suspect]
     Active Substance: SITAGLIPTIN PHOSPHATE
     Indication: TYPE 2 DIABETES MELLITUS
     Dosage: 1 FILM-COATED TABLET
     Route: 048
     Dates: start: 20150119, end: 201701

REACTIONS (6)
  - Plasmacytoma [Unknown]
  - Pancreatic disorder [Unknown]
  - Hepatic necrosis [Recovering/Resolving]
  - Drug-induced liver injury [Unknown]
  - Emphysema [Unknown]
  - Biliary tract disorder [Unknown]

NARRATIVE: CASE EVENT DATE: 2017
